FAERS Safety Report 13526324 (Version 1)
Quarter: 2017Q2

REPORT INFORMATION
  Report Type: Spontaneous
  Country: US (occurrence: US)
  Receive Date: 20170508
  Receipt Date: 20170508
  Transmission Date: 20170830
  Serious: Yes (Life-Threatening, Hospitalization, Other)
  Sender: FDA-Public Use
  Company Number: None

PATIENT
  Age: 81 Year
  Sex: Female
  Weight: 70.65 kg

DRUGS (25)
  1. LASIX [Concomitant]
     Active Substance: FUROSEMIDE
  2. FLAXSEED [Concomitant]
     Active Substance: FLAX SEED
  3. D5LR [Suspect]
     Active Substance: DEXTROSE\RINGER^S SOLUTION, LACTATED
     Indication: RENAL DISORDER
     Dosage: ?          QUANTITY:1000 1000 ML;?
     Route: 042
     Dates: start: 20170102, end: 20170106
  4. TORSIMIDE [Concomitant]
  5. POTASSIUM CL [Concomitant]
     Active Substance: POTASSIUM CHLORIDE
  6. PHENERGAN [Concomitant]
     Active Substance: PROMETHAZINE HYDROCHLORIDE
  7. PRESERVISION [Concomitant]
     Active Substance: MINERALS\VITAMINS
  8. PRILOSEC [Concomitant]
     Active Substance: OMEPRAZOLE MAGNESIUM
  9. ZOFRAN [Concomitant]
     Active Substance: ONDANSETRON HYDROCHLORIDE
  10. COLACE [Concomitant]
     Active Substance: DOCUSATE SODIUM
  11. BABY ASA [Concomitant]
     Active Substance: ASPIRIN
  12. CALCITRIOL. [Concomitant]
     Active Substance: CALCITRIOL
  13. ZOLOFT [Concomitant]
     Active Substance: SERTRALINE HYDROCHLORIDE
  14. CEFTIN [Concomitant]
     Active Substance: CEFUROXIME AXETIL
  15. IMITREX [Concomitant]
     Active Substance: SUMATRIPTAN SUCCINATE
  16. OXYCODONE [Concomitant]
     Active Substance: OXYCODONE
  17. PROBIOTICS [Concomitant]
     Active Substance: PROBIOTICS NOS
  18. VIT B2 [Concomitant]
  19. CARDIZEM [Concomitant]
     Active Substance: DILTIAZEM HYDROCHLORIDE
  20. FENOFIBRATE. [Concomitant]
     Active Substance: FENOFIBRATE
  21. FERROUS SULFATE. [Concomitant]
     Active Substance: FERROUS SULFATE
  22. VITAMIN B12 [Concomitant]
     Active Substance: CYANOCOBALAMIN
  23. MULTIVITAMIN [Concomitant]
     Active Substance: VITAMINS
  24. BACTRIM DS [Suspect]
     Active Substance: SULFAMETHOXAZOLE\TRIMETHOPRIM
     Indication: DIVERTICULITIS
     Dosage: ?          QUANTITY:1 TABLET(S);?
     Route: 048
     Dates: start: 20161223, end: 20161228
  25. VITAMIN D3 [Concomitant]
     Active Substance: CHOLECALCIFEROL

REACTIONS (3)
  - Acute kidney injury [None]
  - Pulmonary oedema [None]
  - Apparent death [None]

NARRATIVE: CASE EVENT DATE: 20161224
